FAERS Safety Report 24700942 (Version 1)
Quarter: 2024Q4

REPORT INFORMATION
  Report Type: Spontaneous
  Country: US (occurrence: None)
  Receive Date: 20241204
  Receipt Date: 20241204
  Transmission Date: 20250115
  Serious: Yes (Other)
  Sender: Public
  Company Number: None

PATIENT
  Age: 68 Year
  Sex: Male
  Weight: 109.8 kg

DRUGS (6)
  1. TECARTUS [Suspect]
     Active Substance: BREXUCABTAGENE AUTOLEUCEL
     Indication: Mantle cell lymphoma
     Dosage: FREQUENCY : ONCE;?
     Route: 042
     Dates: start: 20240117, end: 20240117
  2. RITUXIMAB [Suspect]
     Active Substance: RITUXIMAB
  3. CYTARABINE [Suspect]
     Active Substance: CYTARABINE
  4. BENDAMUSTINE [Suspect]
     Active Substance: BENDAMUSTINE
  5. CYCLOPHOSPHAMIDE [Suspect]
     Active Substance: CYCLOPHOSPHAMIDE
  6. FLUDARABINE [Suspect]
     Active Substance: FLUDARABINE PHOSPHATE

REACTIONS (12)
  - Nervous system disorder [None]
  - Immune thrombocytopenia [None]
  - Pneumocystis jirovecii pneumonia [None]
  - Cytomegalovirus infection reactivation [None]
  - Cytokine release syndrome [None]
  - Diverticular perforation [None]
  - Bacteroides bacteraemia [None]
  - Pancytopenia [None]
  - Myelodysplastic syndrome [None]
  - Immune effector cell-associated neurotoxicity syndrome [None]
  - Marrow hyperplasia [None]
  - Marrow hyperplasia [None]

NARRATIVE: CASE EVENT DATE: 20241016
